FAERS Safety Report 15802953 (Version 2)
Quarter: 2019Q1

REPORT INFORMATION
  Report Type: Spontaneous
  Country: IT (occurrence: IT)
  Receive Date: 20190109
  Receipt Date: 20190111
  Transmission Date: 20190417
  Serious: Yes (Other)
  Sender: FDA-Public Use
  Company Number: IT-JNJFOC-20190109494

PATIENT
  Age: 73 Year
  Sex: Male

DRUGS (5)
  1. TRIATEC [Concomitant]
     Route: 065
  2. XARELTO [Suspect]
     Active Substance: RIVAROXABAN
     Indication: THROMBOSIS PROPHYLAXIS
     Route: 048
     Dates: start: 20180101, end: 20180107
  3. ENAPREN [Concomitant]
     Active Substance: ENALAPRIL MALEATE
     Route: 065
  4. RYTMONORM [Concomitant]
     Active Substance: PROPAFENONE
     Route: 065
  5. CIALIS [Concomitant]
     Active Substance: TADALAFIL
     Route: 065

REACTIONS (6)
  - Ecchymosis [Unknown]
  - Periorbital haemorrhage [Unknown]
  - Head injury [Unknown]
  - Syncope [Unknown]
  - Fall [Unknown]
  - Loss of consciousness [Unknown]

NARRATIVE: CASE EVENT DATE: 20180107
